FAERS Safety Report 7319303-6 (Version None)
Quarter: 2011Q1

REPORT INFORMATION
  Report Type: 
  Country: None (occurrence: None)
  Receive Date: 20110228
  Receipt Date: 20100121
  Transmission Date: 20110831
  Serious: No
  Sender: FDA-Public Use
  Company Number: A0840742A

PATIENT
  Age: 40 Year
  Sex: Female

DRUGS (6)
  1. LAMICTAL [Suspect]
     Indication: EPILEPSY
     Dosage: 200MG THREE TIMES PER DAY
     Route: 048
     Dates: start: 19960101
  2. TAGAMET [Concomitant]
  3. BIRTH CONTROL PILLS [Concomitant]
  4. BENADRYL [Concomitant]
  5. PREDNISONE [Concomitant]
  6. ALLEGRA [Concomitant]

REACTIONS (4)
  - RASH [None]
  - PRURITUS [None]
  - URTICARIA [None]
  - ANTINUCLEAR ANTIBODY INCREASED [None]
